FAERS Safety Report 15888037 (Version 1)
Quarter: 2019Q1

REPORT INFORMATION
  Report Type: Spontaneous
  Country: US (occurrence: US)
  Receive Date: 20190108
  Receipt Date: 20190108
  Transmission Date: 20190417
  Serious: Yes (Life-Threatening, Hospitalization)
  Sender: FDA-Public Use
  Company Number: None

PATIENT
  Age: 82 Year
  Sex: Male
  Weight: 80.29 kg

DRUGS (8)
  1. VIMPAT [Concomitant]
     Active Substance: LACOSAMIDE
  2. LIPITOR [Concomitant]
     Active Substance: ATORVASTATIN CALCIUM
  3. 81MG ASPIRIN [Concomitant]
  4. DECADRON [Concomitant]
     Active Substance: DEXAMETHASONE
  5. GLIADEL [Suspect]
     Active Substance: CARMUSTINE
     Dates: start: 20180402
  6. KEPPRA [Concomitant]
     Active Substance: LEVETIRACETAM
  7. ELIQUIS [Concomitant]
     Active Substance: APIXABAN
  8. FLOMAX [Concomitant]
     Active Substance: TAMSULOSIN HYDROCHLORIDE

REACTIONS (10)
  - Cerebrospinal fluid leakage [None]
  - Unresponsive to stimuli [None]
  - Speech disorder [None]
  - Urinary incontinence [None]
  - Central nervous system infection [None]
  - Brain abscess [None]
  - Wound dehiscence [None]
  - Incision site complication [None]
  - Loss of personal independence in daily activities [None]
  - Gait disturbance [None]

NARRATIVE: CASE EVENT DATE: 20180530
